FAERS Safety Report 5271427-3 (Version None)
Quarter: 2007Q1

REPORT INFORMATION
  Report Type: 
  Country: None (occurrence: None)
  Receive Date: 20061214
  Receipt Date: 20060427
  Transmission Date: 20070707
  Serious: Yes (Other)
  Sender: FDA-Public Use
  Company Number: 2005060719

PATIENT
  Age: 58 Year
  Sex: Male
  Weight: 95.2554 kg

DRUGS (7)
  1. BEXTRA [Suspect]
     Indication: ARTHRITIS
     Dates: start: 20030311
  2. ADVIL [Concomitant]
  3. ALEVE [Concomitant]
  4. MOBIC [Concomitant]
  5. PERCOCET [Concomitant]
  6. TYLENOL [Concomitant]
  7. VIOXX [Concomitant]

REACTIONS (1)
  - MYOCARDIAL INFARCTION [None]
